FAERS Safety Report 17318862 (Version 1)
Quarter: 2020Q1

REPORT INFORMATION
  Report Type: Report from Study
  Country: EG (occurrence: EG)
  Receive Date: 20200124
  Receipt Date: 20200124
  Transmission Date: 20200409
  Serious: Yes (Other)
  Sender: FDA-Public Use
  Company Number: EG-REGENERON PHARMACEUTICALS, INC.-2020-15066

PATIENT

DRUGS (2)
  1. EYLEA [Suspect]
     Active Substance: AFLIBERCEPT
     Indication: PROPHYLAXIS
     Dosage: BOTH EYES, Q4WK
     Route: 031
  2. EYLEA [Suspect]
     Active Substance: AFLIBERCEPT
     Indication: AGE-RELATED MACULAR DEGENERATION
     Dosage: UNK

REACTIONS (4)
  - Eye haemorrhage [Unknown]
  - Off label use [Not Recovered/Not Resolved]
  - Product use in unapproved indication [Not Recovered/Not Resolved]
  - Eye oedema [Not Recovered/Not Resolved]

NARRATIVE: CASE EVENT DATE: 20200116
